FAERS Safety Report 5545567-5 (Version None)
Quarter: 2007Q4

REPORT INFORMATION
  Report Type: 
  Country: None (occurrence: None)
  Receive Date: 20071206
  Receipt Date: 20071121
  Transmission Date: 20080405
  Serious: Yes (Hospitalization)
  Sender: FDA-Public Use
  Company Number: 2007BM000187

PATIENT
  Age: 53 Year
  Sex: Female

DRUGS (5)
  1. PREDNISONE [Suspect]
     Indication: RHEUMATOID ARTHRITIS
     Dosage: 10 MG; QD; 15 MG; QD
  2. LEFLUNOMIDE [Suspect]
     Indication: RHEUMATOID ARTHRITIS
     Dosage: 20 MG; QD
  3. ORAPRED [Suspect]
  4. VITAMIN D [Concomitant]
  5. CALCIUM [Concomitant]

REACTIONS (10)
  - FEMORAL NECK FRACTURE [None]
  - FRACTURED SACRUM [None]
  - ILIUM FRACTURE [None]
  - LUMBAR VERTEBRAL FRACTURE [None]
  - MULTIPLE FRACTURES [None]
  - PELVIC ABSCESS [None]
  - PELVIC INFECTION [None]
  - POSTOPERATIVE WOUND INFECTION [None]
  - STAPHYLOCOCCAL SEPSIS [None]
  - THORACIC VERTEBRAL FRACTURE [None]
